FAERS Safety Report 15049055 (Version 1)
Quarter: 2018Q2

REPORT INFORMATION
  Report Type: Spontaneous
  Country: US (occurrence: US)
  Receive Date: 20180622
  Receipt Date: 20180622
  Transmission Date: 20180711
  Serious: No
  Sender: FDA-Public Use
  Company Number: US-BAYER-2018-111578

PATIENT
  Age: 71 Year
  Sex: Male
  Weight: 92 kg

DRUGS (2)
  1. ALEVE [Suspect]
     Active Substance: NAPROXEN SODIUM
     Dosage: 1 DF, BID
     Route: 048
     Dates: end: 2018
  2. TYLENOL [Suspect]
     Active Substance: ACETAMINOPHEN
     Dosage: UNK

REACTIONS (3)
  - Drug effective for unapproved indication [Unknown]
  - Product use issue [Unknown]
  - Product prescribing issue [Unknown]
